FAERS Safety Report 12566914 (Version 1)
Quarter: 2016Q3

REPORT INFORMATION
  Report Type: Spontaneous
  Country: RU (occurrence: RU)
  Receive Date: 20160718
  Receipt Date: 20160718
  Transmission Date: 20161109
  Serious: Yes (Other)
  Sender: FDA-Public Use
  Company Number: RU-B. BRAUN MEDICAL INC.-1055206

PATIENT
  Age: 66 Year
  Sex: Male

DRUGS (2)
  1. SODIUM CHLORIDE. [Suspect]
     Active Substance: SODIUM CHLORIDE
     Route: 042
  2. ASPARKAM-L (POTASSIUM AND MAGNESIUM ASPARTATE) [Concomitant]

REACTIONS (5)
  - Seizure [None]
  - Chills [None]
  - Nausea [None]
  - Vomiting [None]
  - Cyanosis [None]
